FAERS Safety Report 8286719-3 (Version None)
Quarter: 2012Q2

REPORT INFORMATION
  Report Type: 
  Country: None (occurrence: None)
  Receive Date: 20120416
  Receipt Date: 20120403
  Transmission Date: 20120825
  Serious: Yes (Hospitalization)
  Sender: FDA-Public Use
  Company Number: AU-CELGENEUS-008-50794-11072253

PATIENT
  Sex: Male
  Weight: 64 kg

DRUGS (18)
  1. VITAMIN B COMPLEX CAP [Concomitant]
     Route: 065
  2. LHD [Concomitant]
     Route: 065
  3. SYMBICORT [Concomitant]
     Route: 065
  4. VIDAZA [Suspect]
     Indication: MYELODYSPLASTIC SYNDROME
     Route: 050
     Dates: start: 20110905
  5. ACETAMINOPHEN [Concomitant]
     Route: 065
  6. LOPERAMIDE [Concomitant]
     Route: 065
  7. CHOLECALCIFEROL [Concomitant]
     Route: 065
  8. LBH 589 [Suspect]
     Indication: ACUTE MYELOID LEUKAEMIA
     Dosage: 30 MILLIGRAM
     Route: 065
     Dates: start: 20110708, end: 20110728
  9. LBH 589 [Suspect]
     Indication: MYELODYSPLASTIC SYNDROME
     Route: 065
     Dates: start: 20110905
  10. TRANEXAMIC ACID [Concomitant]
     Route: 065
  11. OMEPRAZOLE [Concomitant]
     Route: 065
  12. MAGMIN [Concomitant]
     Route: 065
  13. VIDAZA [Suspect]
     Indication: ACUTE MYELOID LEUKAEMIA
     Dosage: 75 MILLIGRAM/SQ. METER
     Route: 050
     Dates: start: 20110704, end: 20110728
  14. ALBUTEROL [Concomitant]
     Route: 065
  15. CEFEPIME [Concomitant]
     Indication: PNEUMONIA
     Route: 065
  16. BIOZINC [Concomitant]
     Route: 065
  17. SLOW-K [Concomitant]
     Route: 065
  18. AZITHROMYCIN [Concomitant]
     Indication: PNEUMONIA
     Route: 041
     Dates: start: 20110801

REACTIONS (4)
  - ARTHRALGIA [None]
  - DIARRHOEA [None]
  - INFECTIVE EXACERBATION OF CHRONIC OBSTRUCTIVE AIRWAYS DISEASE [None]
  - HYPOVOLAEMIA [None]
